FAERS Safety Report 18273367 (Version 1)
Quarter: 2020Q3

REPORT INFORMATION
  Report Type: Spontaneous
  Country: US (occurrence: US)
  Receive Date: 20200916
  Receipt Date: 20200916
  Transmission Date: 20201103
  Serious: No
  Sender: FDA-Public Use
  Company Number: US-THERAPEUTICSMD-2020TMD03372

PATIENT
  Age: 57 Year
  Sex: Female
  Weight: 45.35 kg

DRUGS (9)
  1. IMVEXXY [Suspect]
     Active Substance: ESTRADIOL
     Dosage: 10 ?G, SPORADICALLY HERE AND THERE, BEFORE BED
     Route: 067
  2. IMVEXXY [Suspect]
     Active Substance: ESTRADIOL
     Dosage: 10 ?G, 2X/WEEK BEFORE BED
     Route: 067
     Dates: start: 202006, end: 202007
  3. IMVEXXY [Suspect]
     Active Substance: ESTRADIOL
     Dosage: 10 ?G, 3X/WEEK BEFORE BED
     Route: 067
     Dates: start: 202006, end: 202006
  4. TURMERIC [Concomitant]
     Active Substance: HERBALS\TURMERIC
  5. VITAMIN C [Concomitant]
     Active Substance: ASCORBIC ACID
  6. IMVEXXY [Suspect]
     Active Substance: ESTRADIOL
     Indication: DYSPAREUNIA
     Dosage: 10 ?G, 2X/WEEK BEFORE BED
     Route: 067
     Dates: start: 20191206
  7. MAGNESIUM [Concomitant]
     Active Substance: MAGNESIUM
  8. ZINC. [Concomitant]
     Active Substance: ZINC
  9. VITAMIN D [Concomitant]
     Active Substance: VITAMIN D NOS

REACTIONS (4)
  - Vulvovaginal injury [Unknown]
  - Product use complaint [Recovered/Resolved]
  - Off label use [Recovered/Resolved]
  - Vaginal haemorrhage [Recovered/Resolved]

NARRATIVE: CASE EVENT DATE: 20191206
